FAERS Safety Report 9281324 (Version 1)
Quarter: 2013Q2

REPORT INFORMATION
  Report Type: Spontaneous
  Country: AU (occurrence: AU)
  Receive Date: 20130509
  Receipt Date: 20130509
  Transmission Date: 20140414
  Serious: Yes (Other)
  Sender: FDA-Public Use
  Company Number: AU-BRISTOL-MYERS SQUIBB COMPANY-18855452

PATIENT
  Sex: Female

DRUGS (3)
  1. ABILIFY TABS 10 MG [Suspect]
     Indication: BIPOLAR DISORDER
  2. CLOZAPINE [Suspect]
     Indication: EPILEPSY
  3. GABAPENTIN [Suspect]
     Indication: EPILEPSY

REACTIONS (2)
  - Loss of consciousness [Unknown]
  - Lethargy [Unknown]
